FAERS Safety Report 12319057 (Version 3)
Quarter: 2016Q3

REPORT INFORMATION
  Report Type: Report from Study
  Country: DE (occurrence: DE)
  Receive Date: 20160429
  Receipt Date: 20160701
  Transmission Date: 20161109
  Serious: Yes (Hospitalization, Other)
  Sender: FDA-Public Use
  Company Number: PHHY2016DE043569

PATIENT
  Sex: Female
  Weight: 62 kg

DRUGS (4)
  1. EXEMESTANE RATIO [Suspect]
     Active Substance: EXEMESTANE
     Dosage: 25 MG, QD
     Route: 048
     Dates: start: 20150128
  2. EXEMESTANE RATIO [Suspect]
     Active Substance: EXEMESTANE
     Indication: BREAST CANCER METASTATIC
     Dosage: 25 MG, QD
     Route: 048
     Dates: start: 20150108, end: 20150126
  3. AFINITOR [Suspect]
     Active Substance: EVEROLIMUS
     Dosage: 5 MG, QD
     Route: 048
     Dates: start: 20150128
  4. AFINITOR [Suspect]
     Active Substance: EVEROLIMUS
     Indication: BREAST CANCER METASTATIC
     Dosage: 10 MG, QD
     Route: 048
     Dates: start: 20150109, end: 20150126

REACTIONS (24)
  - Cholelithiasis [Not Recovered/Not Resolved]
  - Dyspnoea [Recovering/Resolving]
  - Renal atrophy [Not Recovered/Not Resolved]
  - Renal failure [Not Recovered/Not Resolved]
  - Hypoacusis [Recovering/Resolving]
  - Pneumothorax [Unknown]
  - Rib fracture [Recovered/Resolved]
  - Goitre [Not Recovered/Not Resolved]
  - Aortic elongation [Not Recovered/Not Resolved]
  - Lymphadenopathy [Not Recovered/Not Resolved]
  - Peripheral swelling [Not Recovered/Not Resolved]
  - Pleural effusion [Not Recovered/Not Resolved]
  - Pericardial effusion [Not Recovered/Not Resolved]
  - Aortic thrombosis [Not Recovered/Not Resolved]
  - Renal disorder [Not Recovered/Not Resolved]
  - Lung infiltration [Unknown]
  - Hepatic cyst [Not Recovered/Not Resolved]
  - Aortic arteriosclerosis [Not Recovered/Not Resolved]
  - Lung disorder [Not Recovered/Not Resolved]
  - Pathological fracture [Unknown]
  - Vascular calcification [Unknown]
  - Aortic dilatation [Not Recovered/Not Resolved]
  - Pain [Recovering/Resolving]
  - Lymphadenopathy mediastinal [Not Recovered/Not Resolved]

NARRATIVE: CASE EVENT DATE: 20150615
